FAERS Safety Report 4710012-6 (Version None)
Quarter: 2005Q3

REPORT INFORMATION
  Report Type: 
  Country: None (occurrence: None)
  Receive Date: 20050708
  Receipt Date: 20050630
  Transmission Date: 20060218
  Serious: Yes (Other)
  Sender: FDA-Public Use
  Company Number: PHNU2005DE02424

PATIENT
  Age: 69 Year
  Sex: Female
  Weight: 73 kg

DRUGS (1)
  1. ZOMETA [Suspect]
     Indication: METASTASIS
     Dosage: 4 MG, QMO
     Route: 042
     Dates: end: 20050401

REACTIONS (6)
  - ABSCESS DRAINAGE [None]
  - ABSCESS ORAL [None]
  - OSTEOLYSIS [None]
  - OSTEOMYELITIS [None]
  - PAIN IN JAW [None]
  - TOOTH EXTRACTION [None]
